FAERS Safety Report 10640887 (Version 1)
Quarter: 2014Q4

REPORT INFORMATION
  Report Type: Spontaneous
  Country: DE (occurrence: None)
  Receive Date: 20141205
  Receipt Date: 20141205
  Transmission Date: 20150529
  Serious: Yes (Other)
  Sender: FDA-Public Use
  Company Number: 2014SA126881

PATIENT
  Age: 15 Year
  Sex: Female

DRUGS (1)
  1. CLEXANE [Suspect]
     Active Substance: ENOXAPARIN SODIUM
     Indication: THROMBOSIS PROPHYLAXIS
     Dosage: 20 MILIGRAM (S); DAILY; SUBCUTANEOUS?
     Route: 058
     Dates: start: 20140906, end: 20140919

REACTIONS (1)
  - Leukopenia [None]

NARRATIVE: CASE EVENT DATE: 20140910
